FAERS Safety Report 5338860-2 (Version None)
Quarter: 2007Q2

REPORT INFORMATION
  Report Type: 
  Country: None (occurrence: None)
  Receive Date: 20070530
  Receipt Date: 20070516
  Transmission Date: 20071010
  Serious: Yes (Death)
  Sender: FDA-Public Use
  Company Number: ES-ELI_LILLY_AND_COMPANY-ES200705006806

PATIENT
  Age: 81 Year
  Sex: Female

DRUGS (6)
  1. FORTEO [Suspect]
     Indication: OSTEOPOROSIS
     Dosage: 20 UG, DAILY (1/D)
     Route: 058
     Dates: start: 20061106, end: 20070427
  2. CORTICOSTEROIDS [Concomitant]
  3. SEGURIL [Concomitant]
  4. ADALAT [Concomitant]
  5. DACORTIN [Concomitant]
  6. TRANSTEC [Concomitant]
     Indication: PAIN
     Dosage: 70 MG, UNK

REACTIONS (1)
  - CARDIOPULMONARY FAILURE [None]
